FAERS Safety Report 13554620 (Version 1)
Quarter: 2017Q2

REPORT INFORMATION
  Report Type: Spontaneous
  Country: US (occurrence: US)
  Receive Date: 20170517
  Receipt Date: 20170517
  Transmission Date: 20170830
  Serious: Yes (Other)
  Sender: FDA-Public Use
  Company Number: US-AMGEN-USASP2017070845

PATIENT
  Age: 72 Year
  Sex: Female

DRUGS (1)
  1. PROLIA [Suspect]
     Active Substance: DENOSUMAB
     Indication: OSTEOPOROSIS
     Dosage: 60 MG, Q6MO
     Route: 065
     Dates: start: 2013

REACTIONS (9)
  - Bone loss [Not Recovered/Not Resolved]
  - Oral infection [Unknown]
  - Mobility decreased [Unknown]
  - Tooth disorder [Unknown]
  - Dry mouth [Unknown]
  - Abasia [Unknown]
  - Peripheral swelling [Unknown]
  - Irritability [Unknown]
  - Cystitis [Unknown]

NARRATIVE: CASE EVENT DATE: 2013
